FAERS Safety Report 5459034-0 (Version None)
Quarter: 2007Q3

REPORT INFORMATION
  Report Type: 
  Country: None (occurrence: None)
  Receive Date: 20070919
  Receipt Date: 20070907
  Transmission Date: 20080115
  Serious: Yes (Death, Other)
  Sender: FDA-Public Use
  Company Number: DE-AVENTIS-200710750DE

PATIENT
  Age: 79 Year
  Sex: Male
  Weight: 76 kg

DRUGS (10)
  1. LANTUS [Suspect]
     Route: 058
     Dates: start: 20040913, end: 20070420
  2. GLUCOPHAGE-RETARD [Concomitant]
     Dosage: DOSE: 2 X 1 TABLET
     Route: 048
     Dates: start: 19970101
  3. GLYBURIDE [Concomitant]
     Dosage: DOSE: 3X1TABLET
     Route: 048
     Dates: start: 19970101
  4. CONCOR                             /00802602/ [Concomitant]
     Indication: HYPERTENSION
     Route: 048
     Dates: start: 19970101
  5. CONCOR                             /00802602/ [Concomitant]
     Route: 048
     Dates: start: 19970101
  6. CYNT                               /00985301/ [Concomitant]
     Indication: HYPERTENSION
     Route: 048
     Dates: start: 19970101
  7. UNIMAX [Concomitant]
     Indication: HYPERTENSION
     Dosage: DOSE: 2 X 5/5
     Route: 048
     Dates: start: 19970101
  8. UNAT                               /01036501/ [Concomitant]
     Indication: HYPERTENSION
     Route: 048
     Dates: start: 19970101
  9. VEROSPIRON [Concomitant]
     Indication: HYPERTENSION
     Route: 048
     Dates: start: 19970101
  10. PRAVASTATIN [Concomitant]
     Route: 048
     Dates: start: 20010101

REACTIONS (2)
  - COLON CANCER [None]
  - SUBILEUS [None]
